FAERS Safety Report 6076105-9 (Version None)
Quarter: 2009Q1

REPORT INFORMATION
  Report Type: 
  Country: None (occurrence: None)
  Receive Date: 20090212
  Receipt Date: 20090204
  Transmission Date: 20090719
  Serious: Yes (Other)
  Sender: FDA-Public Use
  Company Number: US-WYE-H08077509

PATIENT
  Sex: Male
  Weight: 79.9 kg

DRUGS (5)
  1. PRISTIQ [Suspect]
     Indication: DEPRESSION
     Route: 048
     Dates: start: 20081101, end: 20081201
  2. PRISTIQ [Suspect]
     Route: 048
     Dates: start: 20090101
  3. DIOVAN [Concomitant]
     Indication: HYPERTENSION
     Dosage: 160 MG
  4. TRIAMTERENE AND HYDROCHLOROTHIAZIDE [Concomitant]
     Dosage: UNKNOWN
  5. POTASSIUM CHLORIDE [Concomitant]
     Dosage: UNKNOWN

REACTIONS (6)
  - DRUG WITHDRAWAL SYNDROME [None]
  - FACIAL SPASM [None]
  - HEADACHE [None]
  - PLATELET COUNT INCREASED [None]
  - SENSORY DISTURBANCE [None]
  - TRANSIENT ISCHAEMIC ATTACK [None]
